FAERS Safety Report 4401473-0 (Version None)
Quarter: 2004Q3

REPORT INFORMATION
  Report Type: 
  Country: None (occurrence: None)
  Receive Date: 20040907
  Receipt Date: 20040520
  Transmission Date: 20050211
  Serious: No
  Sender: FDA-Public Use
  Company Number: US-BRISTOL-MYERS SQUIBB COMPANY-12591871

PATIENT
  Age: 79 Year
  Sex: Female
  Weight: 81 kg

DRUGS (4)
  1. COUMADIN [Suspect]
     Indication: HEART RATE IRREGULAR
     Dosage: DOSAGE INCREASED FROM 5MG DAILY TO 7MG DAILY
     Route: 048
  2. GLUCOPHAGE [Concomitant]
  3. AVALIDE [Concomitant]
  4. DIGOXIN [Concomitant]

REACTIONS (2)
  - OEDEMA PERIPHERAL [None]
  - PROTHROMBIN TIME SHORTENED [None]
